FAERS Safety Report 4694368-9 (Version None)
Quarter: 2005Q2

REPORT INFORMATION
  Report Type: 
  Country: None (occurrence: None)
  Receive Date: 20050620
  Receipt Date: 20050602
  Transmission Date: 20051028
  Serious: Yes (Death, Other)
  Sender: FDA-Public Use
  Company Number: PHBS2005JP08037

PATIENT
  Age: 73 Year
  Sex: Male

DRUGS (5)
  1. DIOVAN [Suspect]
     Dosage: 80 MG, QD
     Route: 048
     Dates: start: 20040801, end: 20050524
  2. LIVALO [Suspect]
     Dosage: 1 MG, QD
     Route: 048
     Dates: start: 20041027, end: 20050524
  3. ACTOS [Concomitant]
     Dosage: 15 MG, UNK
     Route: 048
  4. ACTOS [Concomitant]
     Dosage: 30 MG, UNK
     Route: 048
     Dates: end: 20050524
  5. EPADEL [Concomitant]
     Dosage: 1800 MG, UNK
     Route: 048
     Dates: start: 20020101, end: 20050524

REACTIONS (2)
  - INTERSTITIAL LUNG DISEASE [None]
  - PYREXIA [None]
